FAERS Safety Report 16816143 (Version 4)
Quarter: 2020Q1

REPORT INFORMATION
  Report Type: Spontaneous
  Country: IT (occurrence: IT)
  Receive Date: 20190917
  Receipt Date: 20200109
  Transmission Date: 20200409
  Serious: Yes (Other)
  Sender: FDA-Public Use
  Company Number: PHHY2019IT213912

PATIENT
  Age: 47 Year
  Sex: Male

DRUGS (4)
  1. CAPECITABINE. [Concomitant]
     Active Substance: CAPECITABINE
     Dosage: AS A PART OF 6 CYCLES OF XELOX REGIMEN (ADJUVANT THERAPY)
     Route: 065
  2. OXALIPLATIN. [Suspect]
     Active Substance: OXALIPLATIN
     Indication: GASTROINTESTINAL NEOPLASM
     Dosage: UNK, (6 CYCLES)
     Route: 065
  3. OXALIPLATIN. [Suspect]
     Active Substance: OXALIPLATIN
     Dosage: AS A PART OF 6 CYCLES OF XELOX REGIMEN (ADJUVANT THERAPY)
     Route: 065
  4. CAPECITABINE. [Concomitant]
     Active Substance: CAPECITABINE
     Indication: GASTROINTESTINAL NEOPLASM
     Dosage: UNK, (6 CYCLES)
     Route: 065

REACTIONS (10)
  - Portal vein dilatation [Unknown]
  - Vein disorder [Unknown]
  - Portal shunt [Unknown]
  - Non-cirrhotic portal hypertension [Not Recovered/Not Resolved]
  - Varices oesophageal [Unknown]
  - Splenomegaly [Unknown]
  - Nodular regenerative hyperplasia [Unknown]
  - Product use in unapproved indication [Unknown]
  - Splenorenal shunt [Unknown]
  - Liver disorder [Unknown]
